FAERS Safety Report 14666052 (Version 1)
Quarter: 2018Q1

REPORT INFORMATION
  Report Type: Spontaneous
  Country: FR (occurrence: FR)
  Receive Date: 20180321
  Receipt Date: 20180321
  Transmission Date: 20180509
  Serious: Yes (Hospitalization)
  Sender: FDA-Public Use
  Company Number: FR-TEVA-2018-FR-870192

PATIENT
  Age: 59 Year
  Sex: Male
  Weight: 100 kg

DRUGS (3)
  1. PANTOPRAZOLE [Suspect]
     Active Substance: PANTOPRAZOLE
     Indication: ABDOMINAL PAIN
     Dosage: 20 MILLIGRAM DAILY;
     Route: 065
  2. CLINDAMYCINE BASE [Suspect]
     Active Substance: CLINDAMYCIN HYDROCHLORIDE
     Indication: SEPSIS
     Dosage: 2400 MILLIGRAM DAILY;
     Route: 048
  3. AMOXICILLIN. [Suspect]
     Active Substance: AMOXICILLIN
     Indication: SEPSIS
     Route: 048

REACTIONS (1)
  - Acute generalised exanthematous pustulosis [Recovering/Resolving]
